FAERS Safety Report 9402479 (Version 2)
Quarter: 2013Q3

REPORT INFORMATION
  Report Type: Report from Study
  Country: US (occurrence: US)
  Receive Date: 20130716
  Receipt Date: 20130824
  Transmission Date: 20140515
  Serious: Yes (Hospitalization)
  Sender: FDA-Public Use
  Company Number: US-ROCHE-1246984

PATIENT
  Sex: Female

DRUGS (9)
  1. XOLAIR [Suspect]
     Indication: ASTHMA
     Route: 058
  2. ADVAIR DISKUS [Concomitant]
  3. CLARITIN [Concomitant]
     Route: 065
  4. EPIPEN [Concomitant]
     Route: 065
  5. EVISTA [Concomitant]
     Route: 065
  6. ALBUTEROL [Concomitant]
     Dosage: 0.31 MG/3ML
     Route: 065
  7. QVAR [Concomitant]
     Route: 065
  8. VERAMYST [Concomitant]
     Route: 055
  9. XOPENEX [Concomitant]

REACTIONS (1)
  - Asthma [Unknown]
